FAERS Safety Report 25721602 (Version 1)
Quarter: 2025Q3

REPORT INFORMATION
  Report Type: Spontaneous
  Country: US (occurrence: US)
  Receive Date: 20250825
  Receipt Date: 20250825
  Transmission Date: 20251020
  Serious: Yes (Death)
  Sender: AMGEN
  Company Number: US-AMGEN-USASP2025166711

PATIENT
  Age: 33 Year
  Sex: Male

DRUGS (2)
  1. PREDNISONE [Suspect]
     Active Substance: PREDNISONE
     Indication: Multicentric reticulohistiocytosis
     Route: 065
  2. ETANERCEPT [Suspect]
     Active Substance: ETANERCEPT
     Indication: Multicentric reticulohistiocytosis
     Route: 065

REACTIONS (2)
  - Death [Fatal]
  - Off label use [Unknown]
